FAERS Safety Report 19729728 (Version 6)
Quarter: 2022Q1

REPORT INFORMATION
  Report Type: Report from Study
  Country: CA (occurrence: CA)
  Receive Date: 20210821
  Receipt Date: 20220314
  Transmission Date: 20220423
  Serious: Yes (Other)
  Sender: FDA-Public Use
  Company Number: CA-UCBSA-2021034575

PATIENT
  Sex: Female

DRUGS (5)
  1. BRIVARACETAM [Suspect]
     Active Substance: BRIVARACETAM
     Indication: Seizure
     Dosage: 50 MILLIGRAM, 2X/DAY (BID)
     Route: 048
  2. BRIVARACETAM [Suspect]
     Active Substance: BRIVARACETAM
     Indication: Partial seizures
     Dosage: 50 MILLIGRAM, 3X/DAY (TID)
     Route: 048
  3. BRIVARACETAM [Suspect]
     Active Substance: BRIVARACETAM
     Dosage: 50 MILLIGRAM, 2X/DAY (BID)
     Route: 048
  4. BRIVARACETAM [Suspect]
     Active Substance: BRIVARACETAM
     Dosage: 50MG TWICE DAILY WITH 1 EXTRA PILL
     Route: 048
     Dates: start: 20211219, end: 20211220
  5. BRIVARACETAM [Suspect]
     Active Substance: BRIVARACETAM
     Dosage: 50MG AM, 100MG NOON AND 50MG PM

REACTIONS (12)
  - Brain neoplasm [Not Recovered/Not Resolved]
  - Seizure [Unknown]
  - Disturbance in attention [Not Recovered/Not Resolved]
  - Headache [Unknown]
  - Dizziness [Unknown]
  - Feeling abnormal [Unknown]
  - Sleep disorder [Unknown]
  - Abdominal discomfort [Unknown]
  - Loss of personal independence in daily activities [Unknown]
  - Poor quality sleep [Unknown]
  - Off label use [Unknown]
  - Therapeutic product effect incomplete [Unknown]
